FAERS Safety Report 9741002 (Version 1)
Quarter: 2013Q4

REPORT INFORMATION
  Report Type: Spontaneous
  Country: GB (occurrence: GB)
  Receive Date: 20131209
  Receipt Date: 20131209
  Transmission Date: 20140711
  Serious: Yes (Other)
  Sender: FDA-Public Use
  Company Number: GB-PFIZER INC-2013350361

PATIENT
  Age: 83 Year
  Sex: Male

DRUGS (9)
  1. INSPRA [Suspect]
     Indication: HYPERTENSION
     Dosage: UNK
     Route: 048
     Dates: start: 201310, end: 201311
  2. WARFARIN [Interacting]
     Dosage: DATE STARTED: LONG-STANDING. DOSAGE VARIES.
     Route: 048
  3. DIGOXIN [Interacting]
     Dosage: DATE STARTED: LONG-STANDING
     Route: 048
  4. NEBIVOLOL [Concomitant]
     Dosage: DATE STOPPED: CONTINUING
     Route: 048
  5. CANDESARTAN [Concomitant]
     Dosage: DATE STOPPED: CONTINUING
     Route: 048
  6. HYTRIN [Concomitant]
     Dosage: DATE STOPPED: CONTINUING
     Route: 048
  7. BICALUTAMIDE [Concomitant]
     Dosage: DATE STOPPED: CONTINUING
     Route: 048
  8. ZOLADEX [Concomitant]
  9. LAXIDO [Concomitant]
     Route: 048

REACTIONS (3)
  - Petechiae [Not Recovered/Not Resolved]
  - Vasculitic rash [Not Recovered/Not Resolved]
  - Drug interaction [Unknown]
